FAERS Safety Report 7557318-3 (Version None)
Quarter: 2011Q2

REPORT INFORMATION
  Report Type: 
  Country: None (occurrence: None)
  Receive Date: 20110620
  Receipt Date: 20110603
  Transmission Date: 20111010
  Serious: Yes (Hospitalization, Other)
  Sender: FDA-Public Use
  Company Number: PHHY2011JP12868

PATIENT
  Sex: Male

DRUGS (2)
  1. CARBIDOPA + LEVODOPA [Concomitant]
     Indication: PARKINSON'S DISEASE
     Dosage: 300 MG, UNK
     Dates: start: 20080507, end: 20110109
  2. ENTACAPONE [Suspect]
     Indication: DRUG EFFECT DECREASED
     Dosage: 300 MG, QD
     Route: 048
     Dates: start: 20090114, end: 20110109

REACTIONS (2)
  - HYPOPHAGIA [None]
  - DYSPHAGIA [None]
